FAERS Safety Report 10357408 (Version 2)
Quarter: 2014Q4

REPORT INFORMATION
  Report Type: Spontaneous
  Country: IT (occurrence: IT)
  Receive Date: 20140801
  Receipt Date: 20141110
  Transmission Date: 20150528
  Serious: Yes (Other)
  Sender: FDA-Public Use
  Company Number: IT-009507513-1407ITA010387

PATIENT
  Age: 50 Year
  Sex: Male

DRUGS (7)
  1. FUROSEMIDE. [Concomitant]
     Active Substance: FUROSEMIDE
     Dosage: 2 TABLETS IN THE MORNING AND 1 TABLET IN THE AFTERNOON
     Route: 048
  2. NITROGLYCERIN. [Suspect]
     Active Substance: NITROGLYCERIN
     Dosage: 1 DOSE UNIT, DAILY, TRANSDERMIC NITRATE DRUG, 5 MG, 1 PATCH FROM 8:00 A.M. TO 8:00 P.M.
     Route: 003
     Dates: start: 20140304, end: 20140606
  3. CLOPIDOGREL [Concomitant]
     Active Substance: CLOPIDOGREL BISULFATE
     Dosage: 75 MG DAILY, 1 TABLET AT 8:00 A.M.
  4. CANRENONE [Concomitant]
     Active Substance: CANRENONE
     Dosage: 50 MG DAILY, 1 TABLET, THRICE DAILY
  5. ATORVASTATIN CALCIUM. [Suspect]
     Active Substance: ATORVASTATIN CALCIUM
     Dosage: 40 MG DAILY, 1 TABLET AT 8:00 P.M.
     Route: 048
     Dates: start: 20140304, end: 20140606
  6. CARVEDILOL. [Concomitant]
     Active Substance: CARVEDILOL
     Dosage: 25 MG DAILY, 1/2 TABLET AT 8:00 A.M. AND AT 8:00 P.M.
  7. ASPIRIN. [Concomitant]
     Active Substance: ASPIRIN
     Dosage: 75 MG DAILY, AFTER LUNCH

REACTIONS (2)
  - Myocardial necrosis marker increased [Not Recovered/Not Resolved]
  - Headache [Not Recovered/Not Resolved]

NARRATIVE: CASE EVENT DATE: 20140606
